FAERS Safety Report 9721740 (Version 1)
Quarter: 2013Q4

REPORT INFORMATION
  Report Type: Report from Study
  Country: US (occurrence: US)
  Receive Date: 20131201
  Receipt Date: 20131201
  Transmission Date: 20140711
  Serious: No
  Sender: FDA-Public Use
  Company Number: US-ABBVIE-13P-163-1161206-00

PATIENT
  Age: 47 Year
  Sex: Male

DRUGS (4)
  1. ANDROGEL [Suspect]
     Indication: TESTICULAR FAILURE
     Dosage: 2 PUMPS, EVERY MORNING
     Route: 061
     Dates: start: 201306, end: 20131001
  2. ANDROGEL [Suspect]
     Route: 061
     Dates: start: 20131001
  3. SYNTHROID [Concomitant]
     Indication: PRODUCT USED FOR UNKNOWN INDICATION
  4. BUPROPION [Concomitant]
     Indication: PRODUCT USED FOR UNKNOWN INDICATION

REACTIONS (1)
  - Blood testosterone decreased [Not Recovered/Not Resolved]
